FAERS Safety Report 14893044 (Version 1)
Quarter: 2018Q2

REPORT INFORMATION
  Report Type: Spontaneous
  Country: US (occurrence: US)
  Receive Date: 20180514
  Receipt Date: 20180514
  Transmission Date: 20180711
  Serious: No
  Sender: FDA-Public Use
  Company Number: US-SA-2018SA101937

PATIENT
  Age: 52 Year
  Sex: Female

DRUGS (1)
  1. OXALIPLATIN WINTHROP [Suspect]
     Active Substance: OXALIPLATIN
     Route: 051

REACTIONS (6)
  - Abdominal discomfort [Recovered/Resolved]
  - Chills [Recovered/Resolved]
  - Diarrhoea [Recovered/Resolved]
  - Abdominal pain [Recovered/Resolved]
  - Nausea [Recovered/Resolved]
  - Chest pain [Recovered/Resolved]
